FAERS Safety Report 7832928-4 (Version None)
Quarter: 2011Q4

REPORT INFORMATION
  Report Type: 
  Country: None (occurrence: None)
  Receive Date: 20111024
  Receipt Date: 20111019
  Transmission Date: 20120403
  Serious: Yes (Other)
  Sender: FDA-Public Use
  Company Number: FR-PFIZER INC-2011251327

PATIENT
  Age: 60 Year
  Sex: Female

DRUGS (1)
  1. RELPAX [Suspect]
     Dosage: 60 MG, UNK

REACTIONS (2)
  - MALAISE [None]
  - DRUG DEPENDENCE [None]
